FAERS Safety Report 4585002-7 (Version None)
Quarter: 2005Q1

REPORT INFORMATION
  Report Type: 
  Country: None (occurrence: None)
  Receive Date: 20050217
  Receipt Date: 20041202
  Transmission Date: 20050727
  Serious: No
  Sender: FDA-Public Use
  Company Number: US-GLAXOSMITHKLINE-A0535909A

PATIENT
  Age: 10 Year
  Sex: Female

DRUGS (1)
  1. WELLBUTRIN XL [Suspect]
     Indication: MIGRAINE PROPHYLAXIS
     Dosage: 150MG PER DAY
     Route: 048

REACTIONS (2)
  - FEAR [None]
  - PERSONALITY CHANGE [None]
